FAERS Safety Report 11133617 (Version 1)
Quarter: 2015Q2

REPORT INFORMATION
  Report Type: Spontaneous
  Country: DE (occurrence: DE)
  Receive Date: 20150523
  Receipt Date: 20150523
  Transmission Date: 20150821
  Serious: Yes (Other)
  Sender: FDA-Public Use
  Company Number: DE-CIPLA LTD.-2015DE03946

PATIENT

DRUGS (8)
  1. DOXORUBICIN [Suspect]
     Active Substance: DOXORUBICIN
     Indication: NEPHROBLASTOMA
     Route: 065
  2. VINCRISTINE [Suspect]
     Active Substance: VINCRISTINE
     Indication: NEPHROBLASTOMA
     Route: 065
  3. ETOPOSIDE INJECTION 6 MG/ ML [Suspect]
     Active Substance: ETOPOSIDE
     Dosage: 40 MG/KG, ON ONE DAY
  4. CARBOPLATIN. [Suspect]
     Active Substance: CARBOPLATIN
     Indication: NEPHROBLASTOMA
     Dosage: 400 MG/M2, QD, OVER 3 DAYS
  5. ETOPOSIDE INJECTION 6 MG/ ML [Suspect]
     Active Substance: ETOPOSIDE
     Indication: NEPHROBLASTOMA
     Dosage: 800 MG/M2, UNK, ON ONE DAY
     Route: 065
  6. ACTINOMYCIN D [Suspect]
     Active Substance: DACTINOMYCIN
     Indication: NEPHROBLASTOMA
     Route: 065
  7. IFOSFAMIDE. [Suspect]
     Active Substance: IFOSFAMIDE
     Indication: NEPHROBLASTOMA
     Route: 065
  8. MELPHALAN [Suspect]
     Active Substance: MELPHALAN
     Indication: NEPHROBLASTOMA
     Dosage: 45 MG/M2, QD, OVER 4 DAYS
     Route: 065

REACTIONS (1)
  - Metastases to liver [Unknown]
